FAERS Safety Report 11706610 (Version 1)
Quarter: 2015Q4

REPORT INFORMATION
  Report Type: Report from Study
  Country: US (occurrence: US)
  Receive Date: 20151106
  Receipt Date: 20151106
  Transmission Date: 20160304
  Serious: Yes (Hospitalization)
  Sender: FDA-Public Use
  Company Number: US-ASTRAZENECA-2015SE56472

PATIENT
  Age: 45 Year
  Sex: Female
  Weight: 60.8 kg

DRUGS (9)
  1. INDOMETHACIN. [Concomitant]
     Active Substance: INDOMETHACIN
  2. XANAX [Concomitant]
     Active Substance: ALPRAZOLAM
     Dosage: 0.5MG EVERY 6 HRS AS NEEDED
  3. LEXAPRO [Concomitant]
     Active Substance: ESCITALOPRAM OXALATE
  4. OLAPARIB [Suspect]
     Active Substance: OLAPARIB
     Indication: OVARIAN CANCER
     Route: 048
  5. OLAPARIB [Suspect]
     Active Substance: OLAPARIB
     Indication: OVARIAN CANCER
     Route: 048
  6. TYLENOL [Concomitant]
     Active Substance: ACETAMINOPHEN
  7. GANCICLOVIR. [Concomitant]
     Active Substance: GANCICLOVIR
  8. ZOFRAN [Concomitant]
     Active Substance: ONDANSETRON HYDROCHLORIDE
     Dosage: 4 MG INJECTION EVERY 6HRS AS NEEDED
  9. VANCOMYCIN [Concomitant]
     Active Substance: VANCOMYCIN

REACTIONS (17)
  - Hepatic enzyme increased [Not Recovered/Not Resolved]
  - Cough [Unknown]
  - Sepsis [Unknown]
  - Chills [Not Recovered/Not Resolved]
  - Fatigue [Unknown]
  - Pyrexia [Not Recovered/Not Resolved]
  - Pyrexia [Recovered/Resolved]
  - Depression [Unknown]
  - White blood cell count increased [Recovered/Resolved]
  - Cytomegalovirus infection [Unknown]
  - Platelet count decreased [Unknown]
  - Anxiety [Unknown]
  - Muscular weakness [Unknown]
  - Mental impairment [Unknown]
  - Malaise [Unknown]
  - Headache [Not Recovered/Not Resolved]
  - Diarrhoea [Not Recovered/Not Resolved]

NARRATIVE: CASE EVENT DATE: 20150719
